FAERS Safety Report 25915700 (Version 1)
Quarter: 2025Q4

REPORT INFORMATION
  Report Type: Spontaneous
  Country: EU (occurrence: EU)
  Receive Date: 20251013
  Receipt Date: 20251013
  Transmission Date: 20260118
  Serious: Yes (Hospitalization, Other)
  Sender: SANOFI AVENTIS
  Company Number: EU-SANOFI-02614500

PATIENT
  Age: 48 Year
  Sex: Male

DRUGS (3)
  1. DUPIXENT [Suspect]
     Active Substance: DUPILUMAB
     Indication: Chronic rhinosinusitis with nasal polyps
     Dosage: 300 MG, QOW
     Route: 058
     Dates: start: 20220512, end: 20241229
  2. DUPIXENT [Suspect]
     Active Substance: DUPILUMAB
     Indication: Nasal polyps
     Dosage: 300 MG, QOW
     Route: 058
  3. MOMETASONE FUROATE [Concomitant]
     Active Substance: MOMETASONE FUROATE
     Indication: Nasal polyps
     Dosage: BID
     Route: 045
     Dates: start: 20140114

REACTIONS (6)
  - Angioedema [Unknown]
  - Nausea [Unknown]
  - Burning sensation [Unknown]
  - Eye swelling [Unknown]
  - Eye irritation [Unknown]
  - Rash [Unknown]

NARRATIVE: CASE EVENT DATE: 20240929
